FAERS Safety Report 7646539-7 (Version None)
Quarter: 2011Q3

REPORT INFORMATION
  Report Type: 
  Country: None (occurrence: None)
  Receive Date: 20110729
  Receipt Date: 20110729
  Transmission Date: 20111222
  Serious: Yes (Other)
  Sender: FDA-Public Use
  Company Number: None

PATIENT
  Age: 62 Year
  Sex: Female
  Weight: 65.7716 kg

DRUGS (1)
  1. WELLBUTRIN XL [Suspect]
     Dates: start: 20080101

REACTIONS (4)
  - DEPRESSION [None]
  - ANXIETY [None]
  - INSOMNIA [None]
  - PRODUCT SUBSTITUTION ISSUE [None]
